FAERS Safety Report 23022186 (Version 1)
Quarter: 2023Q4

REPORT INFORMATION
  Report Type: Spontaneous
  Country: US (occurrence: US)
  Receive Date: 20231003
  Receipt Date: 20231003
  Transmission Date: 20240110
  Serious: Yes (Death)
  Sender: FDA-Public Use
  Company Number: US-PFIZER INC-PV202300161136

PATIENT
  Age: 65 Year
  Sex: Female

DRUGS (3)
  1. CIPROFLOXACIN [Suspect]
     Active Substance: CIPROFLOXACIN
     Indication: Mycobacterium haemophilum infection
     Dosage: 250 MG, 2X/DAY
  2. RIFABUTIN [Suspect]
     Active Substance: RIFABUTIN
     Indication: Mycobacterium haemophilum infection
     Dosage: 150 MG, 1X/DAY
  3. CLARITHROMYCIN [Suspect]
     Active Substance: CLARITHROMYCIN
     Indication: Mycobacterium haemophilum infection
     Dosage: 250 MG, 2X/DAY

REACTIONS (2)
  - Respiratory failure [Fatal]
  - Off label use [Unknown]
